FAERS Safety Report 9663717 (Version 1)
Quarter: 2013Q4

REPORT INFORMATION
  Report Type: Report from Study
  Country: US (occurrence: US)
  Receive Date: 20131101
  Receipt Date: 20131101
  Transmission Date: 20140711
  Serious: Yes (Life-Threatening)
  Sender: FDA-Public Use
  Company Number: PHEH2013US022822

PATIENT
  Age: 4 Year
  Sex: Female

DRUGS (1)
  1. TOBI PODHALER [Suspect]
     Indication: CYSTIC FIBROSIS
     Dosage: 112 MG, BID
     Dates: start: 2008

REACTIONS (3)
  - Adverse drug reaction [Unknown]
  - Cough [Unknown]
  - Drug administered to patient of inappropriate age [Unknown]
